FAERS Safety Report 4808348-3 (Version None)
Quarter: 2005Q4

REPORT INFORMATION
  Report Type: 
  Country: None (occurrence: None)
  Receive Date: 20051021
  Receipt Date: 20051011
  Transmission Date: 20060501
  Serious: Yes (Hospitalization)
  Sender: FDA-Public Use
  Company Number: 2005137249

PATIENT
  Age: 20 Year
  Sex: Male
  Weight: 56 kg

DRUGS (2)
  1. AZITHROMYCIN [Suspect]
     Indication: PHARYNGITIS
     Dosage: 500 MG (500 MG, 1 IN 1 D), ORAL
     Route: 048
     Dates: start: 20051001, end: 20051001
  2. CEFZON (CEFDINER) [Concomitant]

REACTIONS (1)
  - ANAPHYLACTIC REACTION [None]
